FAERS Safety Report 8533879-2 (Version None)
Quarter: 2012Q3

REPORT INFORMATION
  Report Type: 
  Country: None (occurrence: None)
  Receive Date: 20120712
  Receipt Date: 20120630
  Transmission Date: 20120928
  Serious: Yes (Hospitalization)
  Sender: FDA-Public Use
  Company Number: AUR-APL-2012-02934

PATIENT
  Age: 69 Year
  Sex: Female
  Weight: 79.36 kg

DRUGS (10)
  1. BLINDED THERAPY [Suspect]
     Indication: PRODUCT USED FOR UNKNOWN INDICATION
     Dosage: 2 MG (2 MG, 1 IN 1 D), UNKNOWN
     Dates: start: 20111129, end: 20111205
  2. METOPROLOL TARTRATE [Concomitant]
  3. VENLAFAXINE HCL [Suspect]
     Indication: PRODUCT USED FOR UNKNOWN INDICATION
     Dosage: 150 MG (75 MG, 1 IN 1 D), UNKNOWN
     Dates: start: 20080615, end: 20110903
  4. LISINOPRIL [Concomitant]
  5. ACETAMINOPHEN [Concomitant]
  6. FUROSEMIDE [Concomitant]
  7. CALCARB-VITD (CALCARB WITH VITAMIN D) [Concomitant]
  8. ALPRAZOLAM [Concomitant]
  9. WARFARIN SODIUM [Concomitant]
  10. DILTIAZEM [Concomitant]

REACTIONS (9)
  - DRUG EFFECT DECREASED [None]
  - FEELING ABNORMAL [None]
  - ATRIAL FIBRILLATION [None]
  - DIZZINESS [None]
  - HYPERTENSION [None]
  - CHEST DISCOMFORT [None]
  - ANXIETY [None]
  - ELECTROCARDIOGRAM QT PROLONGED [None]
  - SENSORY DISTURBANCE [None]
